FAERS Safety Report 13997864 (Version 1)
Quarter: 2017Q3

REPORT INFORMATION
  Report Type: Spontaneous
  Country: GB (occurrence: GB)
  Receive Date: 20170921
  Receipt Date: 20170921
  Transmission Date: 20171128
  Serious: Yes (Hospitalization, Other)
  Sender: FDA-Public Use
  Company Number: GB-BAXTER-2017BAX033462

PATIENT
  Age: 52 Year
  Sex: Female

DRUGS (1)
  1. DIANEAL [Suspect]
     Active Substance: CALCIUM CHLORIDE\DEXTROSE\MAGNESIUM CHLORIDE\SODIUM CHLORIDE\SODIUM LACTATE
     Indication: PERITONEAL DIALYSIS
     Dosage: 3 UNITS
     Route: 033

REACTIONS (5)
  - Infection [Recovering/Resolving]
  - Shock [Unknown]
  - Peritonitis [Unknown]
  - Skin discolouration [Unknown]
  - Peritoneal effluent abnormal [Unknown]

NARRATIVE: CASE EVENT DATE: 201707
